FAERS Safety Report 18777383 (Version 1)
Quarter: 2021Q1

REPORT INFORMATION
  Report Type: Other
  Country: US (occurrence: US)
  Receive Date: 20210122
  Receipt Date: 20210122
  Transmission Date: 20210419
  Serious: No
  Sender: FDA-Public Use
  Company Number: US-CHIESI USA INC.-2020STPI000428

PATIENT
  Sex: Female

DRUGS (2)
  1. REVCOVI [Suspect]
     Active Substance: ELAPEGADEMASE-LVLR
     Dosage: 2.4 MG, 4 VIALS ON FRIDAY, TOTAL OF 7 VIALS PER WEEK
     Route: 030
     Dates: start: 20200124
  2. REVCOVI [Suspect]
     Active Substance: ELAPEGADEMASE-LVLR
     Indication: IMMUNODEFICIENCY
     Dosage: 2.4 MILLIGRAM 3 VIALS ON MONDAY
     Route: 030
     Dates: start: 20200124

REACTIONS (1)
  - Asthenia [Unknown]
